FAERS Safety Report 11283075 (Version 1)
Quarter: 2015Q3

REPORT INFORMATION
  Report Type: Spontaneous
  Country: US (occurrence: None)
  Receive Date: 20150717
  Receipt Date: 20150717
  Transmission Date: 20151125
  Serious: No
  Sender: FDA-Public Use
  Company Number: None

PATIENT
  Sex: Male

DRUGS (1)
  1. VELCADE [Suspect]
     Active Substance: BORTEZOMIB
     Indication: PLASMA CELL MYELOMA

REACTIONS (8)
  - Renal failure [None]
  - Cognitive disorder [None]
  - Transient ischaemic attack [None]
  - Neuropathy peripheral [None]
  - Diarrhoea [None]
  - Memory impairment [None]
  - Pneumonia [None]
  - Sepsis [None]
